FAERS Safety Report 6358398-3 (Version None)
Quarter: 2009Q3

REPORT INFORMATION
  Report Type: 
  Country: None (occurrence: None)
  Receive Date: 20090911
  Receipt Date: 20090904
  Transmission Date: 20100115
  Serious: Yes (Hospitalization, Other)
  Sender: FDA-Public Use
  Company Number: A-JP2008-21360

PATIENT
  Age: 61 Year
  Sex: Female
  Weight: 48 kg

DRUGS (15)
  1. TRACLEER [Suspect]
     Indication: PULMONARY HYPERTENSION
     Dosage: SEE IMAGE
     Route: 048
     Dates: start: 20080530, end: 20080702
  2. TRACLEER [Suspect]
     Indication: PULMONARY HYPERTENSION
     Dosage: SEE IMAGE
     Route: 048
     Dates: start: 20080703, end: 20080706
  3. TRACLEER [Suspect]
     Indication: PULMONARY HYPERTENSION
     Dosage: SEE IMAGE
     Route: 048
     Dates: start: 20080707, end: 20080711
  4. TRACLEER [Suspect]
     Indication: PULMONARY HYPERTENSION
     Dosage: SEE IMAGE
     Route: 048
     Dates: start: 20080712, end: 20080807
  5. TRACLEER [Suspect]
     Indication: PULMONARY HYPERTENSION
     Dosage: SEE IMAGE
     Route: 048
     Dates: start: 20080808, end: 20090317
  6. TRACLEER [Suspect]
     Indication: PULMONARY HYPERTENSION
     Dosage: SEE IMAGE
     Route: 048
     Dates: start: 20090318, end: 20090714
  7. TRACLEER [Suspect]
     Indication: PULMONARY HYPERTENSION
     Dosage: SEE IMAGE
     Route: 048
     Dates: start: 20090715, end: 20090825
  8. TRACLEER [Suspect]
     Indication: PULMONARY HYPERTENSION
     Dosage: SEE IMAGE
     Route: 048
     Dates: start: 20090826, end: 20090904
  9. TRACLEER [Suspect]
     Indication: PULMONARY HYPERTENSION
     Dosage: SEE IMAGE
     Route: 048
     Dates: start: 20090905
  10. WARFARIN SODIUM [Concomitant]
  11. TORASEMIDE 9TORASEMIDE) [Concomitant]
  12. AZELNIDIPINE (AZELNIDIPINE) [Concomitant]
  13. SPIRONOLACTONE [Concomitant]
  14. SULFAMETHOXAZOLE AND TRIMETHOPRIM (TRIMETHOPRIM, SULFAMETHOXAZOLE) [Concomitant]
  15. OXYGEN (OXYGEN) [Concomitant]

REACTIONS (5)
  - ALANINE AMINOTRANSFERASE INCREASED [None]
  - ASPARTATE AMINOTRANSFERASE INCREASED [None]
  - EPISTAXIS [None]
  - GAMMA-GLUTAMYLTRANSFERASE INCREASED [None]
  - PULMONARY HAEMORRHAGE [None]
